FAERS Safety Report 7605784-7 (Version None)
Quarter: 2011Q3

REPORT INFORMATION
  Report Type: 
  Country: None (occurrence: None)
  Receive Date: 20110708
  Receipt Date: 20101004
  Transmission Date: 20111222
  Serious: Yes (Hospitalization)
  Sender: FDA-Public Use
  Company Number: WAES 1010USA00694

PATIENT
  Sex: Male

DRUGS (1)
  1. SINEMET [Suspect]
     Dosage: PO
     Route: 048

REACTIONS (1)
  - ADVERSE EVENT [None]
